FAERS Safety Report 6860462-7 (Version None)
Quarter: 2010Q3

REPORT INFORMATION
  Report Type: 
  Country: None (occurrence: None)
  Receive Date: 20100719
  Receipt Date: 20100719
  Transmission Date: 20110219
  Serious: No
  Sender: FDA-Public Use
  Company Number: None

PATIENT
  Age: 49 Year
  Sex: Male

DRUGS (2)
  1. AVELOX [Suspect]
     Dosage: 400 MILLIGRAMS ONCE A DAY ORALLY
     Route: 048
     Dates: start: 20100601, end: 20100601
  2. AVAPRO [Concomitant]

REACTIONS (1)
  - TENDONITIS [None]
